FAERS Safety Report 6304832-4 (Version None)
Quarter: 2009Q3

REPORT INFORMATION
  Report Type: 
  Country: None (occurrence: None)
  Receive Date: 20090806
  Receipt Date: 20090722
  Transmission Date: 20100115
  Serious: Yes (Hospitalization)
  Sender: FDA-Public Use
  Company Number: 2008BI018515

PATIENT
  Age: 53 Year
  Sex: Male

DRUGS (4)
  1. ZEVALIN [Suspect]
     Indication: B-CELL LYMPHOMA
     Dosage: 1081 MBQ; 1X; IV
     Route: 042
     Dates: start: 20080410, end: 20080410
  2. RITUXIMAB [Concomitant]
  3. PAROXETINE HCL [Concomitant]
  4. ALPRAZOLAM [Concomitant]

REACTIONS (4)
  - DEHYDRATION [None]
  - DEPRESSION [None]
  - HYPOTENSION [None]
  - SYNCOPE [None]
